FAERS Safety Report 23279534 (Version 1)
Quarter: 2023Q4

REPORT INFORMATION
  Report Type: Spontaneous
  Country: US (occurrence: US)
  Receive Date: 20231210
  Receipt Date: 20231210
  Transmission Date: 20240110
  Serious: Yes (Other)
  Sender: FDA-Public Use
  Company Number: US-ENDO-CASE-0049240

PATIENT
  Sex: Female

DRUGS (6)
  1. PERCOCET [Suspect]
     Active Substance: ACETAMINOPHEN\OXYCODONE HYDROCHLORIDE
  2. ACETAMINOPHEN\OXYCODONE HYDROCHLORIDE [Suspect]
     Active Substance: ACETAMINOPHEN\OXYCODONE HYDROCHLORIDE
  3. ACETAMINOPHEN\HYDROCODONE BITARTRATE [Suspect]
     Active Substance: ACETAMINOPHEN\HYDROCODONE BITARTRATE
  4. NORCO [Suspect]
     Active Substance: ACETAMINOPHEN\HYDROCODONE BITARTRATE
  5. VICODIN [Suspect]
     Active Substance: ACETAMINOPHEN\HYDROCODONE BITARTRATE
  6. HYDROMORPHONE [Suspect]
     Active Substance: HYDROMORPHONE

REACTIONS (12)
  - Overdose [Unknown]
  - Dependence [Unknown]
  - Pain [Unknown]
  - Insomnia [Unknown]
  - Anxiety [Unknown]
  - Headache [Unknown]
  - Hypopnoea [Unknown]
  - Chest pain [Unknown]
  - Head injury [Unknown]
  - Breast disorder [Unknown]
  - Carpal tunnel syndrome [Unknown]
  - Panic attack [Unknown]
